FAERS Safety Report 7056354-3 (Version None)
Quarter: 2010Q4

REPORT INFORMATION
  Report Type: 
  Country: None (occurrence: None)
  Receive Date: 20101021
  Receipt Date: 20101014
  Transmission Date: 20110411
  Serious: Yes (Hospitalization, Disabling, Other)
  Sender: FDA-Public Use
  Company Number: US-ABBOTT-10P-163-0678441-00

PATIENT
  Sex: Female
  Weight: 133.48 kg

DRUGS (3)
  1. HUMIRA [Suspect]
     Indication: RHEUMATOID ARTHRITIS
     Route: 058
     Dates: start: 20040101, end: 20100323
  2. UNKNOWN HIGH BLOOD PRESSURE MEDICATION [Concomitant]
     Indication: HYPERTENSION
     Route: 048
  3. UNKNOWN HYPOTHYROIDISM MEDICATION [Concomitant]
     Indication: HYPOTHYROIDISM
     Route: 048

REACTIONS (6)
  - CAPILLARY LEAK SYNDROME [None]
  - CELLULITIS [None]
  - MOBILITY DECREASED [None]
  - PSEUDOMONAS INFECTION [None]
  - SKIN ULCER [None]
  - STAPHYLOCOCCAL INFECTION [None]
